FAERS Safety Report 5190946-1 (Version None)
Quarter: 2006Q4

REPORT INFORMATION
  Report Type: 
  Country: None (occurrence: None)
  Receive Date: 20061222
  Receipt Date: 20061017
  Transmission Date: 20070319
  Serious: Yes (Hospitalization)
  Sender: FDA-Public Use
  Company Number: US-BOEHRINGER INGELHEIM PHARMACEUTICALS, INC.-2006-BP-12185BP

PATIENT
  Age: 69 Year
  Sex: Male

DRUGS (15)
  1. FLOMAX [Suspect]
     Indication: BENIGN PROSTATIC HYPERPLASIA
     Route: 048
     Dates: start: 20060824, end: 20061009
  2. FLOMAX [Suspect]
     Indication: DYSURIA
  3. LOPRESSOR [Concomitant]
     Indication: BLOOD PRESSURE INCREASED
  4. GLUCOTROL XL [Concomitant]
     Indication: DIABETES MELLITUS
  5. FORTAMET HCL [Concomitant]
     Indication: DIABETES MELLITUS
  6. VYTORIN [Concomitant]
     Indication: BLOOD CHOLESTEROL INCREASED
  7. AVODART [Concomitant]
     Indication: BENIGN PROSTATIC HYPERPLASIA
  8. ASPIRIN [Concomitant]
     Indication: CEREBROVASCULAR ACCIDENT PROPHYLAXIS
     Dates: end: 20061001
  9. ASPIRIN [Concomitant]
     Indication: PLATELET DISORDER
  10. DIOVAN [Concomitant]
     Indication: BLOOD PRESSURE INCREASED
  11. LEXAPRO [Concomitant]
     Indication: DEPRESSION
  12. INSULIN [Concomitant]
     Indication: DIABETES MELLITUS
  13. PLAVIX [Concomitant]
     Indication: PLATELET DISORDER
  14. HYDROCHLOROTHIAZIDE [Concomitant]
     Indication: BLOOD PRESSURE
  15. VIGARA [Concomitant]

REACTIONS (5)
  - DIZZINESS [None]
  - EXTRADURAL HAEMATOMA [None]
  - HEAD INJURY [None]
  - SUBDURAL HAEMATOMA [None]
  - SYNCOPE [None]
